FAERS Safety Report 5008876-4 (Version None)
Quarter: 2006Q2

REPORT INFORMATION
  Report Type: 
  Country: None (occurrence: None)
  Receive Date: 20060519
  Receipt Date: 20060508
  Transmission Date: 20061013
  Serious: Yes (Other)
  Sender: FDA-Public Use
  Company Number: 224821

PATIENT
  Age: 52 Year
  Sex: Female
  Weight: 55.3 kg

DRUGS (2)
  1. HERCEPTIN [Suspect]
     Indication: BREAST CANCER METASTATIC
     Dosage: 6 MG/KG, Q3W, INTRAVENOUS
     Route: 042
     Dates: start: 20051005
  2. SULFA DRUGS(SULFA NOS) [Suspect]

REACTIONS (2)
  - VASCULITIS [None]
  - VIRAL INFECTION [None]
